FAERS Safety Report 21715451 (Version 1)
Quarter: 2022Q4

REPORT INFORMATION
  Report Type: Report from Study
  Country: US (occurrence: US)
  Receive Date: 20221212
  Receipt Date: 20221212
  Transmission Date: 20230113
  Serious: Yes (Other)
  Sender: FDA-Public Use
  Company Number: US-PFIZER INC-202201357423

PATIENT
  Age: 70 Year
  Sex: Female

DRUGS (1)
  1. IBRANCE [Suspect]
     Active Substance: PALBOCICLIB
     Dosage: 125MG ONCE DAILY FOR 21 DAYS AND OFF 7 DAYS OF A 28 DAY CYCLE
     Route: 048
     Dates: start: 20221204, end: 20221204

REACTIONS (2)
  - Nausea [Recovering/Resolving]
  - Vomiting projectile [Recovering/Resolving]

NARRATIVE: CASE EVENT DATE: 20221204
